FAERS Safety Report 24248335 (Version 1)
Quarter: 2024Q3

REPORT INFORMATION
  Report Type: Spontaneous
  Country: CN (occurrence: CN)
  Receive Date: 20240826
  Receipt Date: 20240826
  Transmission Date: 20241017
  Serious: Yes (Hospitalization, Disabling)
  Sender: MYLAN
  Company Number: CN-MYLANLABS-2024M1077706

PATIENT
  Age: 75 Year
  Sex: Male
  Weight: 68 kg

DRUGS (3)
  1. CELEBREX [Suspect]
     Active Substance: CELECOXIB
     Indication: Gout
     Dosage: 0.2 GRAM, BID
     Route: 048
     Dates: start: 20240110, end: 20240123
  2. MOXIFLOXACIN HYDROCHLORIDE [Suspect]
     Active Substance: MOXIFLOXACIN HYDROCHLORIDE\MOXIFLOXACIN HYDROCHLORIDE MONOHYDRATE
     Indication: Gout
     Dosage: 0.4 GRAM, QD
     Route: 048
     Dates: start: 20240110, end: 20240123
  3. FEBUXOSTAT [Suspect]
     Active Substance: FEBUXOSTAT
     Indication: Gout
     Dosage: 40 MILLIGRAM, QD
     Route: 048
     Dates: start: 20240110, end: 20240123

REACTIONS (2)
  - Drug eruption [Recovering/Resolving]
  - Oedema [Recovering/Resolving]

NARRATIVE: CASE EVENT DATE: 20240123
